FAERS Safety Report 9060408 (Version 1)
Quarter: 2013Q1

REPORT INFORMATION
  Report Type: Report from Study
  Country: VE (occurrence: VE)
  Receive Date: 20130212
  Receipt Date: 20130212
  Transmission Date: 20140127
  Serious: Yes (Hospitalization, Other)
  Sender: FDA-Public Use
  Company Number: VE-ABBOTT-13P-178-1046852-00

PATIENT
  Sex: Female

DRUGS (2)
  1. HUMIRA [Suspect]
     Indication: RHEUMATOID ARTHRITIS
     Route: 058
     Dates: start: 2006, end: 201111
  2. HUMIRA [Suspect]
     Route: 058
     Dates: start: 201201, end: 20130109

REACTIONS (3)
  - Haemangioma [Recovered/Resolved]
  - Ischaemic stroke [Recovered/Resolved]
  - Abdominal discomfort [Recovering/Resolving]
